FAERS Safety Report 9348510 (Version 5)
Quarter: 2014Q4

REPORT INFORMATION
  Report Type: Spontaneous
  Country: US (occurrence: US)
  Receive Date: 20130614
  Receipt Date: 20141028
  Transmission Date: 20150529
  Serious: Yes (Hospitalization, Other)
  Sender: FDA-Public Use
  Company Number: US-009507513-1203USA01177

PATIENT
  Sex: Female
  Weight: 63.39 kg

DRUGS (3)
  1. ALENDRONATE SODIUM. [Suspect]
     Active Substance: ALENDRONATE SODIUM
     Dosage: 70 MG, UNK
     Route: 048
  2. FOSAMAX PLUS D [Suspect]
     Active Substance: ALENDRONATE SODIUM\CHOLECALCIFEROL
     Indication: OSTEOPOROSIS
     Dosage: 70MG/2800IU
     Route: 048
  3. FOSAMAX [Suspect]
     Active Substance: ALENDRONATE SODIUM
     Indication: OSTEOPOROSIS
     Dosage: 70 MG, UNK
     Route: 048
     Dates: start: 1995, end: 2010

REACTIONS (30)
  - Osteonecrosis of jaw [Unknown]
  - Hysterectomy [Unknown]
  - Sinusitis [Unknown]
  - Staphylococcal infection [Unknown]
  - Joint crepitation [Unknown]
  - Arthralgia [Unknown]
  - Drug ineffective [Unknown]
  - Femur fracture [Unknown]
  - Anxiety [Unknown]
  - Arthralgia [Not Recovered/Not Resolved]
  - Intramedullary rod insertion [Unknown]
  - Osteopenia [Unknown]
  - Respiratory failure [Unknown]
  - Osteoarthritis [Unknown]
  - Monarthritis [Unknown]
  - Osteoarthritis [Unknown]
  - Pain in extremity [Unknown]
  - Bunion operation [Unknown]
  - Hyperlipidaemia [Unknown]
  - Rotator cuff syndrome [Unknown]
  - Arthritis [Unknown]
  - Gastrooesophageal reflux disease [Unknown]
  - Low turnover osteopathy [Unknown]
  - Cyst removal [Unknown]
  - Sinus operation [Unknown]
  - Fractured sacrum [Unknown]
  - Injection site bruising [Unknown]
  - Muscle spasms [Unknown]
  - Irritable bowel syndrome [Unknown]
  - Fibromyalgia [Unknown]

NARRATIVE: CASE EVENT DATE: 20091216
